FAERS Safety Report 10227767 (Version 1)
Quarter: 2014Q2

REPORT INFORMATION
  Report Type: Spontaneous
  Country: US (occurrence: None)
  Receive Date: 20140609
  Receipt Date: 20140609
  Transmission Date: 20141212
  Serious: Yes (Hospitalization)
  Sender: FDA-Public Use
  Company Number: None

PATIENT
  Age: 87 Year
  Sex: Male

DRUGS (2)
  1. DABIGATRAN [Suspect]
     Indication: ATRIAL FIBRILLATION
     Route: 048
     Dates: start: 20131211
  2. ASPIRIN [Suspect]
     Route: 048
     Dates: start: 20131228

REACTIONS (5)
  - Lower gastrointestinal haemorrhage [None]
  - Haemorrhage [None]
  - Anaemia [None]
  - Gastric haemorrhage [None]
  - Gastritis erosive [None]
